FAERS Safety Report 22215043 (Version 1)
Quarter: 2023Q2

REPORT INFORMATION
  Report Type: Spontaneous
  Country: NL (occurrence: NL)
  Receive Date: 20230415
  Receipt Date: 20230415
  Transmission Date: 20230722
  Serious: Yes (Hospitalization, Disabling, Other)
  Sender: FDA-Public Use
  Company Number: NL-LRB-00873546

PATIENT
  Sex: Male
  Weight: 74 kg

DRUGS (2)
  1. RISPERIDONE [Suspect]
     Active Substance: RISPERIDONE
     Indication: Product used for unknown indication
     Dosage: 5MG IN PILL 1 PIECE OF RISPERIDONE USED.1XIN4 OPULENCE
     Route: 065
     Dates: start: 20050527
  2. PALIPERIDONE PALMITATE [Suspect]
     Active Substance: PALIPERIDONE PALMITATE
     Indication: Product used for unknown indication
     Dosage: 5MG IN PILL 1 PIECE OF RISPERIDONE USED.1XIN4 OPULENCE
     Route: 065
     Dates: start: 20050527

REACTIONS (6)
  - Cerebral infarction [Not Recovered/Not Resolved]
  - Arrhythmia [Not Recovered/Not Resolved]
  - Social problem [Not Recovered/Not Resolved]
  - Eating disorder [Not Recovered/Not Resolved]
  - Injection site pustule [Not Recovered/Not Resolved]
  - Fatigue [Not Recovered/Not Resolved]
